FAERS Safety Report 20430272 (Version 1)
Quarter: 2022Q1

REPORT INFORMATION
  Report Type: Report from Study
  Country: FR (occurrence: FR)
  Receive Date: 20220204
  Receipt Date: 20220204
  Transmission Date: 20220423
  Serious: Yes (Hospitalization)
  Sender: FDA-Public Use
  Company Number: FR-SERVIER-S20004832

PATIENT

DRUGS (9)
  1. PEGASPARGASE [Suspect]
     Active Substance: PEGASPARGASE
     Indication: Acute lymphocytic leukaemia
     Dosage: 1800 IU
     Route: 042
     Dates: start: 20180618
  2. VINCRISTINE [Suspect]
     Active Substance: VINCRISTINE
     Indication: Acute lymphocytic leukaemia
     Dosage: 1 MG, ON D8
     Route: 042
     Dates: start: 20180613, end: 20180613
  3. VINCRISTINE [Suspect]
     Active Substance: VINCRISTINE
     Dosage: 1.08 MG, D15, D22,D29
     Route: 042
     Dates: start: 20180620, end: 20180704
  4. DAUNORUBICIN [Suspect]
     Active Substance: DAUNORUBICIN
     Indication: Acute lymphocytic leukaemia
     Dosage: 21 MG, ON D8
     Route: 042
     Dates: start: 20180613, end: 20180613
  5. DAUNORUBICIN [Suspect]
     Active Substance: DAUNORUBICIN
     Dosage: 21.6 MG, ON D15, D22, D29
     Route: 042
     Dates: start: 20180620, end: 20180704
  6. METHOTREXATE [Suspect]
     Active Substance: METHOTREXATE
     Indication: Acute lymphocytic leukaemia
     Dosage: 12 MG ON D13, D26)
     Route: 037
     Dates: start: 20180618, end: 20180629
  7. PREDNISOLONE [Suspect]
     Active Substance: PREDNISOLONE
     Indication: Acute lymphocytic leukaemia
     Dosage: 40 MG, D1 TO D7
     Route: 042
     Dates: start: 20180606, end: 20180612
  8. DEXAMETHASONE [Suspect]
     Active Substance: DEXAMETHASONE
     Indication: Acute lymphocytic leukaemia
     Dosage: 7 MG, D8 TO D28
     Route: 048
     Dates: start: 20180613, end: 20180703
  9. TN UNSPECIFIED [Concomitant]
     Indication: Prophylaxis
     Dosage: 800 MG, 3 TIME A WEEK
     Route: 048

REACTIONS (1)
  - Device related sepsis [Recovered/Resolved]

NARRATIVE: CASE EVENT DATE: 20180715
